FAERS Safety Report 11739000 (Version 1)
Quarter: 2015Q4

REPORT INFORMATION
  Report Type: Spontaneous
  Country: US (occurrence: US)
  Receive Date: 20151113
  Receipt Date: 20151113
  Transmission Date: 20160304
  Serious: No
  Sender: FDA-Public Use
  Company Number: US-ROCHE-1289000

PATIENT
  Sex: Female

DRUGS (1)
  1. KADCYLA [Suspect]
     Active Substance: ADO-TRASTUZUMAB EMTANSINE
     Indication: HER-2 POSITIVE BREAST CANCER
     Route: 065

REACTIONS (6)
  - Pyrexia [Unknown]
  - Muscle spasms [Unknown]
  - Influenza like illness [Unknown]
  - Pain [Unknown]
  - Fatigue [Unknown]
  - Bone pain [Unknown]
